FAERS Safety Report 6336486-5 (Version None)
Quarter: 2009Q3

REPORT INFORMATION
  Report Type: 
  Country: None (occurrence: None)
  Receive Date: 20090901
  Receipt Date: 20090825
  Transmission Date: 20100115
  Serious: Yes (Death, Hospitalization)
  Sender: FDA-Public Use
  Company Number: B0588565A

PATIENT
  Sex: Female
  Weight: 76 kg

DRUGS (20)
  1. ALKERAN [Suspect]
     Indication: DIFFUSE LARGE B-CELL LYMPHOMA
     Dosage: 267.4MG SINGLE DOSE
     Route: 042
     Dates: start: 20090426, end: 20090426
  2. AUGMENTIN '125' [Suspect]
     Indication: ANTIBIOTIC PROPHYLAXIS
  3. MABTHERA [Suspect]
     Indication: DIFFUSE LARGE B-CELL LYMPHOMA
     Route: 042
     Dates: start: 20090119, end: 20090318
  4. NOVANTRONE [Suspect]
     Indication: DIFFUSE LARGE B-CELL LYMPHOMA
     Route: 042
     Dates: start: 20090119, end: 20090318
  5. HOLOXAN [Suspect]
     Indication: DIFFUSE LARGE B-CELL LYMPHOMA
     Route: 042
     Dates: start: 20090119, end: 20090320
  6. ETOPOSIDE [Suspect]
     Indication: DIFFUSE LARGE B-CELL LYMPHOMA
     Route: 042
     Dates: start: 20090119, end: 20090425
  7. BICNU [Suspect]
     Indication: DIFFUSE LARGE B-CELL LYMPHOMA
     Dosage: 573MG SINGLE DOSE
     Route: 042
     Dates: start: 20090421, end: 20090421
  8. ARACYTINE [Suspect]
     Indication: DIFFUSE LARGE B-CELL LYMPHOMA
     Dosage: 191MG TWICE PER DAY
     Route: 042
     Dates: start: 20090422, end: 20090425
  9. VANCOCIN HYDROCHLORIDE [Suspect]
  10. ZOLOFT [Concomitant]
     Dosage: 50MG PER DAY
  11. ZELITREX [Concomitant]
     Dosage: 500MG TWICE PER DAY
     Dates: start: 20090101
  12. XANAX [Concomitant]
     Dosage: .25MG THREE TIMES PER DAY
  13. PRIMPERAN [Concomitant]
  14. BICARBONATE [Concomitant]
  15. DIFFU K [Concomitant]
  16. SPECIAFOLDINE [Concomitant]
  17. STEM CELL TRANSPLANT [Concomitant]
     Route: 042
     Dates: start: 20090428, end: 20090428
  18. UROMITEXAN [Concomitant]
     Indication: DIFFUSE LARGE B-CELL LYMPHOMA
     Dosage: 850MG PER DAY
     Route: 042
     Dates: start: 20090119, end: 20090218
  19. UROMITEXAN [Concomitant]
     Dosage: 1800MG CYCLIC
     Route: 048
     Dates: start: 20090216, end: 20090218
  20. RASBURICASE [Concomitant]
     Dosage: 15MG PER DAY
     Dates: start: 20090119

REACTIONS (7)
  - BONE MARROW FAILURE [None]
  - CHILLS [None]
  - DIARRHOEA [None]
  - PRODUCTIVE COUGH [None]
  - PYREXIA [None]
  - STEM CELL TRANSPLANT [None]
  - TOXIC SKIN ERUPTION [None]
